FAERS Safety Report 18497761 (Version 1)
Quarter: 2020Q4

REPORT INFORMATION
  Report Type: Spontaneous
  Country: GB (occurrence: GB)
  Receive Date: 20201112
  Receipt Date: 20201112
  Transmission Date: 20210114
  Serious: Yes (Other)
  Sender: FDA-Public Use
  Company Number: GB-GILEAD-2020-0503891

PATIENT
  Age: 32 Year
  Sex: Male
  Weight: 106.2 kg

DRUGS (7)
  1. TINZAPARIN SODIUM [Concomitant]
     Active Substance: TINZAPARIN SODIUM
     Indication: THROMBOSIS PROPHYLAXIS
     Dosage: 8,000UNITS/0.4ML
     Route: 058
     Dates: start: 20201018, end: 20201023
  2. REMDESIVIR. [Suspect]
     Active Substance: REMDESIVIR
     Indication: CORONAVIRUS INFECTION
     Dosage: 200 MG, ONCE
     Route: 042
     Dates: start: 20201018, end: 20201018
  3. REMDESIVIR. [Suspect]
     Active Substance: REMDESIVIR
     Dosage: 200MG DAY 1 THEN 100MG DAILY FOR TOTAL 5 DAYS
     Route: 042
     Dates: start: 20201019, end: 20201023
  4. LANSOPRAZOLE. [Concomitant]
     Active Substance: LANSOPRAZOLE
     Route: 048
  5. PARACETAMOL [Concomitant]
     Active Substance: ACETAMINOPHEN
     Indication: PYREXIA
     Dosage: 500MG-1G QDS
     Route: 048
  6. LYMECYCLINE [Concomitant]
     Active Substance: LYMECYCLINE
     Dosage: TAKEN PRE-ADMISSION. NOT RECEIVED DURING ADMISSION PERIOD 18/10-23/10
     Dates: end: 20201017
  7. DEXAMETHASONE. [Concomitant]
     Active Substance: DEXAMETHASONE
     Dosage: 10 DAY COURSE DISCONTINUED AT DISCHARGE AS NATIONAL GUIDELINES
     Route: 048
     Dates: start: 20201018, end: 20201023

REACTIONS (1)
  - Alanine aminotransferase increased [Recovering/Resolving]

NARRATIVE: CASE EVENT DATE: 20201018
